FAERS Safety Report 6938087-4 (Version None)
Quarter: 2010Q3

REPORT INFORMATION
  Report Type: 
  Country: None (occurrence: None)
  Receive Date: 20100817
  Receipt Date: 20100804
  Transmission Date: 20110219
  Serious: Yes (Other)
  Sender: FDA-Public Use
  Company Number: 2010AP001685

PATIENT
  Age: 26 Year
  Sex: Female

DRUGS (5)
  1. LAMOTRIGINE [Suspect]
     Indication: BIPOLAR DISORDER
     Dosage: 175 MG; PO
     Route: 048
     Dates: start: 20100401, end: 20100714
  2. ETONOGESTREL [Concomitant]
  3. OMEPRAZOLE [Concomitant]
  4. ARIPIPRAZOLE [Concomitant]
  5. LAMOTRIGINE [Concomitant]

REACTIONS (7)
  - CHEILITIS [None]
  - DIZZINESS [None]
  - HYPERSOMNIA [None]
  - MYALGIA [None]
  - NAUSEA [None]
  - OROPHARYNGEAL BLISTERING [None]
  - STEVENS-JOHNSON SYNDROME [None]
